FAERS Safety Report 15832042 (Version 2)
Quarter: 2019Q2

REPORT INFORMATION
  Report Type: Report from Study
  Country: US (occurrence: US)
  Receive Date: 20190116
  Receipt Date: 20190412
  Transmission Date: 20190711
  Serious: Yes (Other)
  Sender: FDA-Public Use
  Company Number: US-SA-2019SA011389

PATIENT
  Age: 63 Year
  Sex: Male

DRUGS (22)
  1. SIMETHICONE (DIMETHICONE) [Concomitant]
     Active Substance: DIMETHICONE
     Dosage: UPTO 4 PRN
  2. LOSARTAN. [Concomitant]
     Active Substance: LOSARTAN
     Dosage: 100 MG, HS
  3. ALBUTEROL [SALBUTAMOL] [Concomitant]
     Active Substance: ALBUTEROL
     Dosage: 180 UG, PRN (2 PUFFS AS NEEDED)
  4. PIOGLITAZONE HCL [Concomitant]
     Active Substance: PIOGLITAZONE
     Dosage: 30 MG, QD (AT BREAKFAST)
  5. LEVETIRACETAM. [Concomitant]
     Active Substance: LEVETIRACETAM
     Dosage: 1500 MG, BID (AT BREAKFATS AND DINNER)
  6. FISH OIL [Concomitant]
     Active Substance: FISH OIL
     Dosage: 1200 MG, QD (AT BREAKFAST)
  7. INSULIN GLARGINE [Suspect]
     Active Substance: INSULIN GLARGINE
     Dosage: 56 U, QD (AT DINNER)
  8. JARDIANCE [Concomitant]
     Active Substance: EMPAGLIFLOZIN
     Dosage: 25 MG, QD (AT BREAKFAST)
  9. AMLODIPINE [Concomitant]
     Active Substance: AMLODIPINE BESYLATE
     Dosage: 10 MG, QD AT LUNCH
  10. CETIRIZINE [Concomitant]
     Active Substance: CETIRIZINE HYDROCHLORIDE
     Dosage: 10 MG, QD (AT LUNCH)
  11. ASPIRIN [ACETYLSALICYLIC ACID] [Concomitant]
     Active Substance: ASPIRIN
     Dosage: 81 MG, QD (AT LUNCH)
  12. LACTOBACILLUS [Concomitant]
     Active Substance: LACTOBACILLUS ACIDOPHILUS
     Dosage: 1 DF, HS
  13. CHOLESTYRAMINE LIGHT [Concomitant]
     Active Substance: CHOLESTYRAMINE
     Dosage: 5.7 G, HS (1 SCOOP)
  14. ATENOLOL. [Concomitant]
     Active Substance: ATENOLOL
     Dosage: 75 MG, QD (AT BREAKFAST)
  15. PANTOPRAZOLE SODIUM. [Concomitant]
     Active Substance: PANTOPRAZOLE SODIUM
     Dosage: 40 MG, HS
  16. VITAMIN D3 [Concomitant]
     Active Substance: CHOLECALCIFEROL
     Dosage: 2000 IU, QD (AT BREAKFAST)
  17. IMODIUM [Concomitant]
     Active Substance: LOPERAMIDE HYDROCHLORIDE
     Dosage: UPTO 10 PRN
  18. GLIMEPIRIDE. [Concomitant]
     Active Substance: GLIMEPIRIDE
     Dosage: 2 MG, QD (AT BREAKFAST)
  19. PRAVASTATIN. [Concomitant]
     Active Substance: PRAVASTATIN
     Dosage: 5 MG, QOD
  20. FENOFIBRATE. [Concomitant]
     Active Substance: FENOFIBRATE
     Dosage: 134 MG, QD (AT DINNER)
  21. FERROUS SULFATE. [Concomitant]
     Active Substance: FERROUS SULFATE
     Dosage: 325 MG, HS
  22. VITAMIN B12 [Concomitant]
     Active Substance: CYANOCOBALAMIN
     Dosage: 1000 MG, QD (AT LUNCH)

REACTIONS (12)
  - Dizziness [Not Recovered/Not Resolved]
  - Intestinal congestion [Not Recovered/Not Resolved]
  - Asthma [Unknown]
  - Tendon disorder [Not Recovered/Not Resolved]
  - Type 2 diabetes mellitus [Unknown]
  - Epilepsy [Unknown]
  - Osteoarthritis [Not Recovered/Not Resolved]
  - Sleep apnoea syndrome [Not Recovered/Not Resolved]
  - Parosmia [Not Recovered/Not Resolved]
  - Deafness bilateral [Unknown]
  - Tinnitus [Not Recovered/Not Resolved]
  - Meralgia paraesthetica [Not Recovered/Not Resolved]
